FAERS Safety Report 16029823 (Version 1)
Quarter: 2019Q1

REPORT INFORMATION
  Report Type: Report from Study
  Country: GB (occurrence: GB)
  Receive Date: 20190304
  Receipt Date: 20190304
  Transmission Date: 20190418
  Serious: Yes (Hospitalization)
  Sender: FDA-Public Use
  Company Number: GB-JNJFOC-20190230157

PATIENT
  Age: 52 Year
  Sex: Male
  Weight: 84.75 kg

DRUGS (15)
  1. ASPIRIN. [Concomitant]
     Active Substance: ASPIRIN
     Route: 065
     Dates: start: 20140701
  2. OMEPRAZOLE. [Concomitant]
     Active Substance: OMEPRAZOLE
     Route: 065
     Dates: start: 20140701
  3. TAMSULOSIN HYDROCHLORIDE. [Concomitant]
     Active Substance: TAMSULOSIN HYDROCHLORIDE
     Route: 065
     Dates: start: 20150901
  4. ATORVASTATIN [Concomitant]
     Active Substance: ATORVASTATIN
     Route: 065
     Dates: start: 20140701
  5. RAMIPRIL. [Concomitant]
     Active Substance: RAMIPRIL
     Route: 065
     Dates: start: 20130330
  6. STELARA [Suspect]
     Active Substance: USTEKINUMAB
     Indication: PSORIASIS
     Route: 058
     Dates: start: 20170821, end: 20181209
  7. ENSTILAR [Concomitant]
     Active Substance: BETAMETHASONE DIPROPIONATE\CALCIPOTRIENE HYDRATE
     Route: 065
     Dates: start: 20170118
  8. ETRIVEX [Concomitant]
     Active Substance: CLOBETASOL PROPIONATE
     Route: 065
     Dates: start: 20170719
  9. REFRESH CELLUVISC [Concomitant]
     Active Substance: CARBOXYMETHYLCELLULOSE SODIUM
     Route: 065
     Dates: start: 20130330
  10. STELARA [Suspect]
     Active Substance: USTEKINUMAB
     Indication: PSORIASIS
     Route: 058
     Dates: start: 20141013, end: 20170719
  11. AMLODIPINE [Concomitant]
     Active Substance: AMLODIPINE BESYLATE
     Route: 065
     Dates: start: 20110701
  12. DIPROBASE [Concomitant]
     Active Substance: CHLOROCRESOL
     Route: 065
     Dates: start: 20170719
  13. CARBIMAZOLE [Concomitant]
     Active Substance: CARBIMAZOLE
     Route: 065
     Dates: start: 20170913
  14. TICAGRELOR. [Concomitant]
     Active Substance: TICAGRELOR
     Route: 065
     Dates: start: 20140701
  15. BISOPROLOL [Concomitant]
     Active Substance: BISOPROLOL
     Route: 065
     Dates: start: 20140701

REACTIONS (2)
  - Cholecystitis infective [Recovered/Resolved]
  - Post procedural bile leak [Recovered/Resolved]

NARRATIVE: CASE EVENT DATE: 201711
